FAERS Safety Report 19399286 (Version 1)
Quarter: 2021Q2

REPORT INFORMATION
  Report Type: Spontaneous
  Country: ES (occurrence: ES)
  Receive Date: 20210610
  Receipt Date: 20210610
  Transmission Date: 20210717
  Serious: Yes (Other)
  Sender: FDA-Public Use
  Company Number: ES-ACCORD-227718

PATIENT
  Age: 63 Year
  Sex: Female
  Weight: 93 kg

DRUGS (4)
  1. ESCITALOPRAM [Concomitant]
     Active Substance: ESCITALOPRAM OXALATE
     Indication: DEPRESSION
     Dosage: STRENGTH?10 MG, 1 TAB/24 H
     Route: 048
  2. OMEPRAZOLE KERN PHARMA [Concomitant]
     Dosage: STRENGTH?20 MG, 1 CAPS./24H
     Route: 048
  3. PARACETAMOL KERN PHARMA [Concomitant]
     Indication: PAIN
     Dosage: 1 TAB/8 H
     Route: 048
  4. PACLITAXEL ACCORD [Suspect]
     Active Substance: PACLITAXEL
     Indication: BREAST CANCER
     Route: 042
     Dates: start: 20210525

REACTIONS (2)
  - Feeling hot [Recovered/Resolved]
  - Pruritus [Recovered/Resolved]

NARRATIVE: CASE EVENT DATE: 20210525
